FAERS Safety Report 9702341 (Version 1)
Quarter: 2013Q4

REPORT INFORMATION
  Report Type: Spontaneous
  Country: GB (occurrence: GB)
  Receive Date: 20131121
  Receipt Date: 20131121
  Transmission Date: 20140711
  Serious: Yes (Hospitalization)
  Sender: FDA-Public Use
  Company Number: GB-GALDERMA-GB13003644

PATIENT
  Sex: Female
  Weight: 40.3 kg

DRUGS (2)
  1. BENZOYL PEROXIDE [Suspect]
     Indication: PRODUCT USED FOR UNKNOWN INDICATION
     Route: 065
     Dates: start: 20130917, end: 20131015
  2. FLUOXETINE [Concomitant]
     Dates: start: 20130715, end: 20131012

REACTIONS (1)
  - Face oedema [Recovered/Resolved]
